FAERS Safety Report 23844880 (Version 2)
Quarter: 2024Q2

REPORT INFORMATION
  Report Type: Spontaneous
  Country: FR (occurrence: FR)
  Receive Date: 20240511
  Receipt Date: 20240527
  Transmission Date: 20240716
  Serious: Yes (Other)
  Sender: FDA-Public Use
  Company Number: FR-TEVA-VS-3195671

PATIENT
  Age: 43 Year
  Sex: Female

DRUGS (6)
  1. PREDNISOLONE [Suspect]
     Active Substance: PREDNISOLONE
     Indication: Uveitis
     Dosage: WITH TAPERING OVER SEVERAL MONTHS
     Route: 048
  2. SULFADIAZINE [Concomitant]
     Active Substance: SULFADIAZINE
     Indication: Product used for unknown indication
     Route: 065
  3. ACYCLOVIR [Concomitant]
     Active Substance: ACYCLOVIR
     Indication: Product used for unknown indication
     Route: 042
  4. METHYLPREDNISOLONE [Suspect]
     Active Substance: METHYLPREDNISOLONE
     Indication: Uveitis
     Dosage: FOR 3 DAYS
     Route: 042
  5. PYRIMETHAMINE [Concomitant]
     Active Substance: PYRIMETHAMINE
     Indication: Product used for unknown indication
     Route: 065
  6. PREDNISONE [Suspect]
     Active Substance: PREDNISONE
     Indication: Uveitis
     Route: 065

REACTIONS (2)
  - Retinitis [Recovered/Resolved]
  - Choroiditis [Recovered/Resolved]
